FAERS Safety Report 7414969-4 (Version None)
Quarter: 2011Q2

REPORT INFORMATION
  Report Type: 
  Country: None (occurrence: None)
  Receive Date: 20110414
  Receipt Date: 20110322
  Transmission Date: 20111010
  Serious: Yes (Hospitalization, Other)
  Sender: FDA-Public Use
  Company Number: US-BAYER-2010-003369

PATIENT
  Age: 18 Year
  Sex: Female

DRUGS (5)
  1. IMITREX [Concomitant]
     Indication: HEADACHE
     Dosage: UNK
     Dates: start: 20050901
  2. MOTRIN [Concomitant]
  3. ACETAMINOPHEN W/ CODEINE [Concomitant]
  4. YASMIN [Suspect]
     Indication: ORAL CONTRACEPTION
     Dosage: UNK
     Dates: start: 20050701, end: 20050801
  5. TYLENOL W/ CODEINE NO. 3 [Concomitant]
     Dosage: UNK
     Dates: start: 20050901

REACTIONS (5)
  - MIGRAINE [None]
  - JAUNDICE [None]
  - THROMBOTIC THROMBOCYTOPENIC PURPURA [None]
  - DYSARTHRIA [None]
  - AMNESIA [None]
